FAERS Safety Report 7451316-6 (Version None)
Quarter: 2011Q2

REPORT INFORMATION
  Report Type: 
  Country: None (occurrence: None)
  Receive Date: 20110422
  Receipt Date: 20110412
  Transmission Date: 20111010
  Serious: Yes (Death, Hospitalization)
  Sender: FDA-Public Use
  Company Number: 2010004563

PATIENT
  Age: 63 Year
  Sex: Male
  Weight: 70.45 kg

DRUGS (18)
  1. ACETAMINOPHEN [Concomitant]
  2. LOVENOX (HEPARIN-FRACTION, SODIUM) [Concomitant]
  3. NORCO [Concomitant]
  4. MONOPRIL [Concomitant]
  5. PROTONIX [Concomitant]
  6. MIRALAX [Concomitant]
  7. GEMCITABINE [Suspect]
     Indication: PANCREATIC CARCINOMA
     Dosage: 1000 MG/M2, DAYS 1, 8, AND 15, INTRAVENOUS
     Route: 042
     Dates: start: 20100902, end: 20101015
  8. IMC-A12 (INJECTION FOR INFUSION) [Suspect]
     Indication: PANCREATIC CARCINOMA
     Dosage: 6 MG/KG, DAUS 1, 8, 15 AND 22, INTRAVENOUS
     Route: 042
     Dates: start: 20100902, end: 20101015
  9. MORPHINE [Concomitant]
  10. COMPAZINE [Concomitant]
  11. AMBIEN [Concomitant]
  12. ERLOTINIB HYDROCHLORIDE [Suspect]
     Indication: PANCREATIC CARCINOMA
     Dosage: 100 MG, QD, ORAL
     Route: 048
     Dates: start: 20100902, end: 20101020
  13. ADVAIR DISKUS 100/50 [Concomitant]
  14. GLUCOTROL [Concomitant]
  15. PROZAC [Concomitant]
  16. LASIX [Concomitant]
  17. GLUCOPHAGE [Concomitant]
  18. SENOKOT [Concomitant]

REACTIONS (12)
  - LEFT VENTRICULAR DYSFUNCTION [None]
  - STAPHYLOCOCCUS TEST POSITIVE [None]
  - PULMONARY EMBOLISM [None]
  - ASPIRATION TRACHEAL ABNORMAL [None]
  - VENTRICULAR ARRHYTHMIA [None]
  - HYPONATRAEMIA [None]
  - SINUS TACHYCARDIA [None]
  - VENTRICULAR FIBRILLATION [None]
  - ACIDOSIS [None]
  - PULSELESS ELECTRICAL ACTIVITY [None]
  - HYPERGLYCAEMIA [None]
  - PNEUMONIA [None]
